FAERS Safety Report 8164544-1 (Version None)
Quarter: 2012Q1

REPORT INFORMATION
  Report Type: 
  Country: None (occurrence: None)
  Receive Date: 20120225
  Receipt Date: 20120215
  Transmission Date: 20120608
  Serious: Yes (Congenital Anomaly, Other)
  Sender: FDA-Public Use
  Company Number: DE-ACCORD-012464

PATIENT

DRUGS (4)
  1. PREDNISONE [Concomitant]
     Route: 064
  2. CYCLOSPORINE [Concomitant]
     Route: 064
  3. MYCOPHENOLATE MOFETIL [Suspect]
     Indication: LIVER TRANSPLANT
     Dosage: MMF EXPOSURE 0-18 WEEKS
     Route: 064
  4. URSODIOL [Concomitant]
     Route: 064

REACTIONS (4)
  - FOETAL EXPOSURE TIMING UNSPECIFIED [None]
  - ATRIAL SEPTAL DEFECT [None]
  - BRAIN MALFORMATION [None]
  - PREMATURE BABY [None]
